FAERS Safety Report 20778846 (Version 1)
Quarter: 2022Q2

REPORT INFORMATION
  Report Type: Spontaneous
  Country: JP (occurrence: JP)
  Receive Date: 20220503
  Receipt Date: 20220503
  Transmission Date: 20220720
  Serious: Yes (Death, Other)
  Sender: FDA-Public Use
  Company Number: JP-RECORDATI-2022001686

PATIENT

DRUGS (17)
  1. DACTINOMYCIN [Suspect]
     Active Substance: DACTINOMYCIN
     Indication: Clear cell sarcoma of the kidney
  2. VINCRISTINE [Suspect]
     Active Substance: VINCRISTINE
     Indication: Clear cell sarcoma of the kidney
     Dosage: UNK
  3. VINCRISTINE [Suspect]
     Active Substance: VINCRISTINE
     Dosage: THREE COURSES OF CHEMOTHERAPY
  4. VINCRISTINE [Suspect]
     Active Substance: VINCRISTINE
     Dosage: UNK
  5. DOXORUBICIN [Suspect]
     Active Substance: DOXORUBICIN
     Indication: Clear cell sarcoma of the kidney
     Dosage: UNK
  6. DOXORUBICIN [Suspect]
     Active Substance: DOXORUBICIN
     Dosage: UNK
  7. IFOSFAMIDE [Suspect]
     Active Substance: IFOSFAMIDE
     Indication: Clear cell sarcoma of the kidney
     Dosage: SIX COURSES OF CHEMOTHERAPY
  8. IFOSFAMIDE [Suspect]
     Active Substance: IFOSFAMIDE
     Dosage: UNK
  9. CARBOPLATIN [Suspect]
     Active Substance: CARBOPLATIN
     Indication: Clear cell sarcoma of the kidney
     Dosage: SIX COURSES OF CHEMOTHERAPY
  10. ETOPOSIDE [Suspect]
     Active Substance: ETOPOSIDE
     Indication: Clear cell sarcoma of the kidney
     Dosage: SIX COURSES OF CHEMOTHERAPY
  11. ETOPOSIDE [Suspect]
     Active Substance: ETOPOSIDE
     Dosage: UNK
  12. CYCLOPHOSPHAMIDE [Suspect]
     Active Substance: CYCLOPHOSPHAMIDE
     Indication: Clear cell sarcoma of the kidney
     Dosage: THREE COURSES OF CHEMOTHERAPY
  13. CYCLOPHOSPHAMIDE [Suspect]
     Active Substance: CYCLOPHOSPHAMIDE
     Dosage: UNK
  14. PIRARUBICIN [Suspect]
     Active Substance: PIRARUBICIN
     Indication: Clear cell sarcoma of the kidney
     Dosage: THREE COURSES OF CHEMOTHERAPY
  15. CISPLATIN [Suspect]
     Active Substance: CISPLATIN
     Indication: Clear cell sarcoma of the kidney
     Dosage: THREE COURSES OF CHEMOTHERAPY
  16. BUSULFAN [Suspect]
     Active Substance: BUSULFAN
     Indication: Clear cell sarcoma of the kidney
     Dosage: HIGH DOSE
  17. MELPHALAN [Suspect]
     Active Substance: MELPHALAN
     Indication: Clear cell sarcoma of the kidney
     Dosage: HIGH DOSE

REACTIONS (2)
  - Neoplasm recurrence [Fatal]
  - Off label use [Recovered/Resolved]
